FAERS Safety Report 4876556-1 (Version None)
Quarter: 2006Q1

REPORT INFORMATION
  Report Type: 
  Country: None (occurrence: None)
  Receive Date: 20060106
  Receipt Date: 20051215
  Transmission Date: 20060701
  Serious: Yes (Other)
  Sender: FDA-Public Use
  Company Number: ENTC2005-0373

PATIENT
  Age: 73 Year
  Sex: Female

DRUGS (6)
  1. STALEVO 100 [Suspect]
     Indication: PARKINSON'S DISEASE
     Dosage: SEE IMAGE
     Route: 048
     Dates: start: 20040831, end: 20050101
  2. STALEVO 100 [Suspect]
     Indication: PARKINSON'S DISEASE
     Dosage: SEE IMAGE
     Route: 048
     Dates: start: 20050101, end: 20051101
  3. STALEVO 100 [Suspect]
     Indication: PARKINSON'S DISEASE
     Dosage: SEE IMAGE
     Route: 048
     Dates: start: 20050101, end: 20051101
  4. STALEVO 100 [Suspect]
     Indication: PARKINSON'S DISEASE
     Dosage: SEE IMAGE
     Route: 048
     Dates: start: 20040831
  5. REQUIP [Concomitant]
  6. SIFROL [Concomitant]

REACTIONS (3)
  - BASAL CELL CARCINOMA [None]
  - CONDITION AGGRAVATED [None]
  - PARKINSON'S DISEASE [None]
